FAERS Safety Report 14344597 (Version 5)
Quarter: 2018Q1

REPORT INFORMATION
  Report Type: Report from Study
  Country: DE (occurrence: DE)
  Receive Date: 20180102
  Receipt Date: 20180131
  Transmission Date: 20180509
  Serious: Yes (Hospitalization)
  Sender: FDA-Public Use
  Company Number: DE-B.I. PHARMACEUTICALS,INC./RIDGEFIELD-2017-BI-069008

PATIENT
  Age: 30 Year
  Sex: Female
  Weight: 45 kg

DRUGS (16)
  1. DEXAMETHASON [Concomitant]
     Active Substance: DEXAMETHASONE
     Indication: CHEMOTHERAPY
     Route: 042
     Dates: start: 20171219
  2. NOVALGIN (METAMIZOLE SODIUM) [Concomitant]
     Active Substance: METAMIZOLE SODIUM
     Indication: BONE PAIN
     Dosage: DAILY DOSE: 3-5 X 40
     Route: 048
     Dates: start: 20171212
  3. EMEND [Concomitant]
     Active Substance: APREPITANT
     Indication: CHEMOTHERAPY
     Route: 042
     Dates: start: 20171219
  4. BIBF 1120 [Suspect]
     Active Substance: NINTEDANIB
     Indication: CERVIX CARCINOMA
     Route: 048
     Dates: start: 20171219, end: 20171227
  5. MOVICOL [Concomitant]
     Active Substance: POLYETHYLENE GLYCOL 3350\POTASSIUM CHLORIDE\SODIUM BICARBONATE\SODIUM CHLORIDE
     Indication: CONSTIPATION
     Route: 048
     Dates: start: 20171212
  6. OXYCODON [Concomitant]
     Active Substance: OXYCODONE
     Indication: BONE PAIN
     Route: 048
     Dates: start: 20171113
  7. DOLOPHINE [Concomitant]
     Active Substance: METHADONE HYDROCHLORIDE
     Indication: BONE PAIN
     Route: 048
     Dates: start: 20171113
  8. MCP [Concomitant]
     Active Substance: METOCLOPRAMIDE HYDROCHLORIDE
     Indication: PROPHYLAXIS
     Route: 048
     Dates: start: 20171213
  9. PACLITAXEL. [Suspect]
     Active Substance: PACLITAXEL
     Indication: CERVIX CARCINOMA
     Dosage: STRENGTH:175 MG/M^2, DAILY DOSE 256, 90 MG
     Route: 042
     Dates: start: 20171219, end: 20171219
  10. PACLITAXEL. [Suspect]
     Active Substance: PACLITAXEL
     Dosage: STRENGTH:175 MG/M^2, DAILY DOSE 256, 90 MG
     Route: 042
     Dates: end: 20180109
  11. ONDANSETRAN [Concomitant]
     Active Substance: ONDANSETRON HYDROCHLORIDE
     Indication: PRODUCT USED FOR UNKNOWN INDICATION
     Route: 042
     Dates: start: 20171219
  12. SEVREDOL [Concomitant]
     Active Substance: MORPHINE
     Indication: BONE PAIN
     Route: 048
     Dates: start: 20171213
  13. CARBOPLATIN. [Suspect]
     Active Substance: CARBOPLATIN
     Indication: CERVIX CARCINOMA
     Dosage: STRENGTH: 5 AUC
     Route: 042
     Dates: start: 20171219, end: 20171219
  14. CLEMASTIN [Concomitant]
     Active Substance: CLEMASTINE
     Indication: PRODUCT USED FOR UNKNOWN INDICATION
     Route: 042
     Dates: start: 20171219
  15. ZOFRAN [Concomitant]
     Active Substance: ONDANSETRON HYDROCHLORIDE
     Indication: PROPHYLAXIS
     Route: 048
     Dates: start: 20171213
  16. RANITIDINE. [Concomitant]
     Active Substance: RANITIDINE
     Indication: CHEMOTHERAPY
     Route: 042
     Dates: start: 20171219

REACTIONS (2)
  - Dermatitis allergic [Recovered/Resolved]
  - Drug hypersensitivity [Unknown]

NARRATIVE: CASE EVENT DATE: 20171226
